FAERS Safety Report 6120267-1 (Version None)
Quarter: 2009Q1

REPORT INFORMATION
  Report Type: 
  Country: None (occurrence: None)
  Receive Date: 20090312
  Receipt Date: 20090303
  Transmission Date: 20090719
  Serious: Yes (Hospitalization)
  Sender: FDA-Public Use
  Company Number: 2009SP004759

PATIENT
  Age: 59 Year
  Sex: Female
  Weight: 97 kg

DRUGS (13)
  1. TEMOZOLOMIDE [Suspect]
     Indication: GLIOBLASTOMA MULTIFORME
     Dosage: 200 MG/M2; QD
     Dates: start: 20081120, end: 20081124
  2. BEVACIZUMAB [Suspect]
     Indication: GLIOBLASTOMA MULTIFORME
     Dosage: 10 MG/KG;QOW, 10 MG/KG; QOW
     Dates: start: 20081120, end: 20081120
  3. BEVACIZUMAB [Suspect]
     Indication: GLIOBLASTOMA MULTIFORME
     Dosage: 10 MG/KG;QOW, 10 MG/KG; QOW
     Dates: start: 20081203, end: 20081203
  4. DEXAMETHASONE             /00016002/ [Concomitant]
  5. PROTONIX             /01263201/ [Concomitant]
  6. EFFEXOR [Concomitant]
  7. PHENERGAN HCL [Concomitant]
  8. ZOFRAN [Concomitant]
  9. RAMIPRIL [Concomitant]
  10. KLONOPIN [Concomitant]
  11. HYDROCODONE /0060002/ [Concomitant]
  12. ATIVAN [Concomitant]
  13. COLACE [Concomitant]

REACTIONS (2)
  - DEHYDRATION [None]
  - INTESTINAL PERFORATION [None]
